FAERS Safety Report 25225827 (Version 1)
Quarter: 2025Q2

REPORT INFORMATION
  Report Type: Spontaneous
  Country: US (occurrence: US)
  Receive Date: 20250422
  Receipt Date: 20250422
  Transmission Date: 20250717
  Serious: No
  Sender: SANOFI AVENTIS
  Company Number: US-SA-2025SA115755

PATIENT
  Age: 3 Year
  Sex: Male

DRUGS (1)
  1. DUPIXENT [Suspect]
     Active Substance: DUPILUMAB
     Indication: Dermatitis atopic
     Dosage: 200 MG, Q4W
     Route: 058
     Dates: start: 202407

REACTIONS (6)
  - Eyelid skin dryness [Unknown]
  - Dry skin [Unknown]
  - Eyelids pruritus [Unknown]
  - Swelling of eyelid [Unknown]
  - Erythema of eyelid [Unknown]
  - Blepharitis [Unknown]
